FAERS Safety Report 22008500 (Version 1)
Quarter: 2023Q1

REPORT INFORMATION
  Report Type: Spontaneous
  Country: CN (occurrence: CN)
  Receive Date: 20230219
  Receipt Date: 20230219
  Transmission Date: 20230418
  Serious: Yes (Other)
  Sender: FDA-Public Use
  Company Number: CN-JNJFOC-20230225681

PATIENT
  Sex: Female

DRUGS (2)
  1. STELARA [Suspect]
     Active Substance: USTEKINUMAB
     Indication: Psoriasis
     Route: 058
  2. STELARA [Suspect]
     Active Substance: USTEKINUMAB

REACTIONS (7)
  - Angina pectoris [Unknown]
  - Gastrointestinal pain [Unknown]
  - Myalgia [Unknown]
  - Arthralgia [Unknown]
  - Glossodynia [Unknown]
  - Breast enlargement [Unknown]
  - Pulmonary mass [Unknown]
